FAERS Safety Report 7946736-7 (Version None)
Quarter: 2011Q4

REPORT INFORMATION
  Report Type: 
  Country: None (occurrence: None)
  Receive Date: 20111129
  Receipt Date: 20111122
  Transmission Date: 20120403
  Serious: Yes (Other)
  Sender: FDA-Public Use
  Company Number: PHHY2011GB102211

PATIENT

DRUGS (1)
  1. OMEPRAZOLE [Suspect]
     Dosage: UNK

REACTIONS (1)
  - INTRACRANIAL PRESSURE INCREASED [None]
